FAERS Safety Report 17446541 (Version 1)
Quarter: 2020Q1

REPORT INFORMATION
  Report Type: Spontaneous
  Country: CA (occurrence: CA)
  Receive Date: 20200221
  Receipt Date: 20200221
  Transmission Date: 20200409
  Serious: Yes (Other)
  Sender: FDA-Public Use
  Company Number: CA-ACTELION-A-NJ2020-201941

PATIENT
  Age: 65 Year
  Sex: Female

DRUGS (9)
  1. VITAMIN B12 [Concomitant]
     Active Substance: CYANOCOBALAMIN
  2. APIXABAN [Concomitant]
     Active Substance: APIXABAN
  3. RABEPRAZOLE [Concomitant]
     Active Substance: RABEPRAZOLE
  4. HYDROMORPHONE [Concomitant]
     Active Substance: HYDROMORPHONE
  5. DULOXETINE. [Concomitant]
     Active Substance: DULOXETINE
  6. VIAGRA [Concomitant]
     Active Substance: SILDENAFIL CITRATE
  7. UPTRAVI [Suspect]
     Active Substance: SELEXIPAG
     Indication: PULMONARY ARTERIAL HYPERTENSION
     Dosage: UNK
     Route: 048
     Dates: start: 20190805
  8. CLONAZEPAM. [Concomitant]
     Active Substance: CLONAZEPAM
  9. DOCUSATE [Concomitant]
     Active Substance: DOCUSATE

REACTIONS (2)
  - Hypertension [Unknown]
  - Stress [Unknown]

NARRATIVE: CASE EVENT DATE: 202002
